FAERS Safety Report 21972590 (Version 1)
Quarter: 2023Q1

REPORT INFORMATION
  Report Type: Report from Study
  Country: IN (occurrence: None)
  Receive Date: 20230209
  Receipt Date: 20230209
  Transmission Date: 20230417
  Serious: Yes (Hospitalization)
  Sender: FDA-Public Use
  Company Number: IN-Eisai Medical Research-EC-2023-133290

PATIENT
  Age: 67 Year
  Sex: Female

DRUGS (1)
  1. HALAVEN [Suspect]
     Active Substance: ERIBULIN MESYLATE
     Indication: Breast cancer
     Route: 041
     Dates: start: 20220907, end: 20220907

REACTIONS (4)
  - Hyponatraemia [Recovering/Resolving]
  - Vomiting [Recovering/Resolving]
  - Nausea [Recovering/Resolving]
  - Headache [Recovering/Resolving]

NARRATIVE: CASE EVENT DATE: 20230129
